FAERS Safety Report 17519073 (Version 1)
Quarter: 2020Q1

REPORT INFORMATION
  Report Type: Spontaneous
  Country: US (occurrence: US)
  Receive Date: 20200228
  Receipt Date: 20200228
  Transmission Date: 20200409
  Serious: Yes (Other)
  Sender: FDA-Public Use
  Company Number: None

PATIENT
  Age: 26 Year
  Sex: Female

DRUGS (1)
  1. LORYNA [Suspect]
     Active Substance: DROSPIRENONE\ETHINYL ESTRADIOL
     Indication: MIGRAINE PROPHYLAXIS
     Dosage: ?          OTHER DOSE:3MG/0.02;?
     Route: 048
     Dates: start: 201507

REACTIONS (3)
  - Mood swings [None]
  - Endometrial thickening [None]
  - Dysfunctional uterine bleeding [None]

NARRATIVE: CASE EVENT DATE: 20150701
